FAERS Safety Report 10836638 (Version 2)
Quarter: 2015Q2

REPORT INFORMATION
  Report Type: Spontaneous
  Country: US (occurrence: US)
  Receive Date: 20150219
  Receipt Date: 20150513
  Transmission Date: 20150821
  Serious: No
  Sender: FDA-Public Use
  Company Number: US-ASTRAZENECA-2015SE13754

PATIENT
  Age: 18661 Day
  Sex: Female
  Weight: 121.1 kg

DRUGS (1)
  1. BYDUREON [Suspect]
     Active Substance: EXENATIDE
     Route: 058

REACTIONS (7)
  - Oropharyngeal pain [Not Recovered/Not Resolved]
  - Pharyngeal oedema [Unknown]
  - Injection site pruritus [Unknown]
  - Injection site nodule [Unknown]
  - Dysphonia [Unknown]
  - Speech disorder [Unknown]
  - Malaise [Unknown]

NARRATIVE: CASE EVENT DATE: 20150209
